FAERS Safety Report 4649492-3 (Version None)
Quarter: 2005Q2

REPORT INFORMATION
  Report Type: 
  Country: None (occurrence: None)
  Receive Date: 20050427
  Receipt Date: 20050418
  Transmission Date: 20051028
  Serious: Yes (Other)
  Sender: FDA-Public Use
  Company Number: 2005032512

PATIENT
  Sex: Male

DRUGS (4)
  1. VIAGRA [Suspect]
     Indication: ERECTILE DYSFUNCTION
     Dosage: ORAL
     Route: 048
  2. FUROSEMMIDE 9FUROSEMIDE0 [Concomitant]
  3. ALLOPURINOL [Concomitant]
  4. FUROSEMIDE [Concomitant]

REACTIONS (7)
  - BACK PAIN [None]
  - DISEASE RECURRENCE [None]
  - HEADACHE [None]
  - MYOCARDIAL INFARCTION [None]
  - SHOULDER PAIN [None]
  - TESTICULAR SWELLING [None]
  - WEIGHT INCREASED [None]
